FAERS Safety Report 8815044 (Version 1)
Quarter: 2012Q4

REPORT INFORMATION
  Report Type: 
  Country: US (occurrence: US)
  Receive Date: 20120928
  Receipt Date: 20120928
  Transmission Date: 20130627
  Serious: Yes (Hospitalization)
  Sender: FDA-Public Use
  Company Number: US-FRI-1000038881

PATIENT
  Sex: Male
  Weight: 92.5 kg

DRUGS (2)
  1. DALIRESP [Suspect]
     Indication: PULMONARY OEDEMA
     Dates: start: 2012, end: 2012
  2. REVATIO [Suspect]
     Indication: PULMONARY OEDEMA
     Dosage: 60 mg
     Dates: start: 2012, end: 2012

REACTIONS (3)
  - Pulmonary oedema [Recovered/Resolved]
  - Weight decreased [Unknown]
  - Off label use [Unknown]
